FAERS Safety Report 6549555-1 (Version None)
Quarter: 2010Q1

REPORT INFORMATION
  Report Type: 
  Country: None (occurrence: None)
  Receive Date: 20100119
  Receipt Date: 20100104
  Transmission Date: 20100710
  Serious: No
  Sender: FDA-Public Use
  Company Number: 2010AC000013

PATIENT
  Sex: Male

DRUGS (19)
  1. DIGOXIN [Suspect]
     Dosage: 0.125 MG; PO
     Route: 048
     Dates: start: 19981101
  2. ASIX [Concomitant]
  3. MOTRIN [Concomitant]
  4. MILRINONE [Concomitant]
  5. EPINEPHRINE [Concomitant]
  6. NIPRIDE [Concomitant]
  7. DOBUTAMINE HCL [Concomitant]
  8. FUROSEMIDE [Concomitant]
  9. CAPTOPRIL [Concomitant]
  10. AMOXICILLIN [Concomitant]
  11. PENICILLIN VK [Concomitant]
  12. SPIRONOLACTONE [Concomitant]
  13. PREDNISOLONE [Concomitant]
  14. TRIMOX [Concomitant]
  15. CLAVULANATE POTASSIUM [Concomitant]
  16. MEBENDAZOLE [Concomitant]
  17. AMOXIL [Concomitant]
  18. ZITHROMIAX [Concomitant]
  19. AUGMENTIN [Concomitant]

REACTIONS (15)
  - ANOXIC ENCEPHALOPATHY [None]
  - AORTIC STENOSIS [None]
  - BLINDNESS CORTICAL [None]
  - BODY TEMPERATURE INCREASED [None]
  - CARDIAC MURMUR [None]
  - CARDIO-RESPIRATORY ARREST [None]
  - CATHETER SITE CELLULITIS [None]
  - CONFUSIONAL STATE [None]
  - DISORIENTATION [None]
  - FRUSTRATION [None]
  - HYPERSOMNIA [None]
  - HYPOPHAGIA [None]
  - LEFT VENTRICULAR DYSFUNCTION [None]
  - PAIN [None]
  - RESPIRATORY SYNCYTIAL VIRUS INFECTION [None]
